FAERS Safety Report 7761809-X (Version None)
Quarter: 2011Q3

REPORT INFORMATION
  Report Type: 
  Country: None (occurrence: None)
  Receive Date: 20110920
  Receipt Date: 20110915
  Transmission Date: 20111222
  Serious: Yes (Hospitalization, Other)
  Sender: FDA-Public Use
  Company Number: CA-ABBOTT-11P-028-0847687-00

PATIENT
  Sex: Female
  Weight: 99.88 kg

DRUGS (1)
  1. HUMIRA [Suspect]
     Indication: CROHN'S DISEASE
     Route: 058
     Dates: start: 20100406, end: 20110509

REACTIONS (11)
  - ABORTION SPONTANEOUS [None]
  - DRUG INEFFECTIVE [None]
  - PHARYNGITIS [None]
  - FATIGUE [None]
  - ABDOMINAL PAIN [None]
  - NAUSEA [None]
  - MIGRAINE [None]
  - CONJUNCTIVITIS [None]
  - MENSTRUATION IRREGULAR [None]
  - HERPES ZOSTER [None]
  - CROHN'S DISEASE [None]
